FAERS Safety Report 5724872-3 (Version None)
Quarter: 2008Q2

REPORT INFORMATION
  Report Type: 
  Country: None (occurrence: None)
  Receive Date: 20080501
  Receipt Date: 20080422
  Transmission Date: 20081010
  Serious: Yes (Death)
  Sender: FDA-Public Use
  Company Number: JP-AVENTIS-200811802EU

PATIENT
  Age: 67 Year
  Sex: Male

DRUGS (6)
  1. URSO                               /00465701/ [Suspect]
     Indication: DRUG USE FOR UNKNOWN INDICATION
     Route: 048
  2. LASIX [Suspect]
     Indication: DRUG USE FOR UNKNOWN INDICATION
     Dosage: DOSE: 20 DF
     Route: 048
  3. CYANAMIDE LIQUID-WF [Suspect]
     Indication: ALCOHOL POISONING
     Route: 048
     Dates: start: 20080117, end: 20080122
  4. ALLOZYM [Suspect]
     Indication: DRUG USE FOR UNKNOWN INDICATION
     Dosage: DOSE: 200 DF
     Route: 048
  5. ALDACTONE [Suspect]
     Indication: DRUG USE FOR UNKNOWN INDICATION
     Dosage: DOSE: 25 DF
     Route: 048
  6. ARICEPT ODT [Suspect]
     Indication: DRUG USE FOR UNKNOWN INDICATION
     Dosage: DOSE: 5 DF
     Route: 048

REACTIONS (1)
  - SUBARACHNOID HAEMORRHAGE [None]
